FAERS Safety Report 9764361 (Version 1)
Quarter: 2013Q4

REPORT INFORMATION
  Report Type: Spontaneous
  Country: US (occurrence: US)
  Receive Date: 20131217
  Receipt Date: 20131217
  Transmission Date: 20140711
  Serious: Yes (Other)
  Sender: FDA-Public Use
  Company Number: US-BIOGENIDEC-2013BI119333

PATIENT
  Age: 45 Year
  Sex: Female

DRUGS (2)
  1. AVONEX [Suspect]
     Indication: MULTIPLE SCLEROSIS
     Route: 030
     Dates: start: 20131018
  2. IBUPROFEN [Concomitant]
     Indication: INFLUENZA LIKE ILLNESS

REACTIONS (3)
  - Gastric bypass [Unknown]
  - Injection site bruising [Not Recovered/Not Resolved]
  - Influenza like illness [Not Recovered/Not Resolved]
